FAERS Safety Report 6273180-3 (Version None)
Quarter: 2009Q3

REPORT INFORMATION
  Report Type: 
  Country: None (occurrence: None)
  Receive Date: 20090720
  Receipt Date: 20090715
  Transmission Date: 20100115
  Serious: Yes (Death, Life-Threatening, Hospitalization)
  Sender: FDA-Public Use
  Company Number: GB-BRISTOL-MYERS SQUIBB COMPANY-14702617

PATIENT
  Age: 79 Year
  Sex: Female
  Weight: 50 kg

DRUGS (4)
  1. HYDROXYCARBAMIDE [Suspect]
     Indication: ESSENTIAL THROMBOCYTHAEMIA
     Dosage: ON SEP08-NOV08:1 G ON NOV08-MAR09:500MG
     Route: 048
     Dates: start: 20080901, end: 20090301
  2. ALLOPURINOL [Concomitant]
     Indication: GOUT
  3. AMLODIPINE [Concomitant]
     Indication: HYPERTENSION
  4. CITALOPRAM HYDROBROMIDE [Concomitant]
     Indication: DEPRESSION

REACTIONS (6)
  - ANAEMIA [None]
  - DEATH [None]
  - DUODENAL ULCER PERFORATION [None]
  - IMPAIRED HEALING [None]
  - NEUTROPENIA [None]
  - SEPSIS [None]
